FAERS Safety Report 8094178-9 (Version None)
Quarter: 2012Q1

REPORT INFORMATION
  Report Type: 
  Country: None (occurrence: None)
  Receive Date: 20120130
  Receipt Date: 20120130
  Transmission Date: 20120608
  Serious: No
  Sender: FDA-Public Use
  Company Number: None

PATIENT
  Sex: Female
  Weight: 74.842 kg

DRUGS (1)
  1. VESICARE [Suspect]
     Indication: BLADDER IRRITATION
     Dosage: 1 A DAY
     Route: 048
     Dates: start: 20120119, end: 20120128

REACTIONS (1)
  - RASH [None]
